FAERS Safety Report 25355125 (Version 6)
Quarter: 2025Q3

REPORT INFORMATION
  Report Type: Spontaneous
  Country: US (occurrence: US)
  Receive Date: 20250524
  Receipt Date: 20250711
  Transmission Date: 20251020
  Serious: No
  Sender: UNITED THERAPEUTICS
  Company Number: US-UNITED THERAPEUTICS-UNT-2025-013888

PATIENT
  Sex: Male
  Weight: 85.261 kg

DRUGS (30)
  1. ORENITRAM [Suspect]
     Active Substance: TREPROSTINIL
     Indication: Pulmonary arterial hypertension
     Dosage: 1.375 MG, TID
     Dates: start: 2025, end: 2025
  2. ORENITRAM [Suspect]
     Active Substance: TREPROSTINIL
     Indication: Lung disorder
     Dosage: 0.25 MG, TID
     Dates: start: 2025, end: 2025
  3. ORENITRAM [Suspect]
     Active Substance: TREPROSTINIL
     Indication: Hypoxia
     Dosage: 3.25 MG, TID
     Dates: start: 2025, end: 202504
  4. ORENITRAM [Suspect]
     Active Substance: TREPROSTINIL
     Dosage: 1.625 MG, TID
     Dates: start: 202504, end: 202504
  5. ORENITRAM [Suspect]
     Active Substance: TREPROSTINIL
  6. ORENITRAM [Suspect]
     Active Substance: TREPROSTINIL
     Dosage: 1.5 MG, Q8H
     Dates: start: 2025, end: 2025
  7. ORENITRAM [Suspect]
     Active Substance: TREPROSTINIL
     Dosage: 1.625 MG, Q8H
     Dates: start: 2025, end: 202506
  8. ORENITRAM [Suspect]
     Active Substance: TREPROSTINIL
     Dosage: 1.675 MG, Q8H
     Dates: start: 202506, end: 202506
  9. ORENITRAM [Suspect]
     Active Substance: TREPROSTINIL
     Dosage: 1.25 MG, Q8H
     Dates: start: 202506, end: 2025
  10. ORENITRAM [Suspect]
     Active Substance: TREPROSTINIL
     Dosage: 1 MG, Q8H
     Dates: start: 2025
  11. ORENITRAM [Suspect]
     Active Substance: TREPROSTINIL
  12. ORENITRAM [Suspect]
     Active Substance: TREPROSTINIL
     Indication: Pulmonary arterial hypertension
  13. ORENITRAM [Suspect]
     Active Substance: TREPROSTINIL
     Indication: Lung disorder
  14. ORENITRAM [Suspect]
     Active Substance: TREPROSTINIL
     Indication: Hypoxia
  15. ORENITRAM [Suspect]
     Active Substance: TREPROSTINIL
     Indication: Pulmonary arterial hypertension
  16. ORENITRAM [Suspect]
     Active Substance: TREPROSTINIL
     Indication: Lung disorder
  17. ORENITRAM [Suspect]
     Active Substance: TREPROSTINIL
     Indication: Hypoxia
  18. ORENITRAM [Suspect]
     Active Substance: TREPROSTINIL
     Indication: Pulmonary arterial hypertension
  19. ORENITRAM [Suspect]
     Active Substance: TREPROSTINIL
     Indication: Lung disorder
  20. ORENITRAM [Suspect]
     Active Substance: TREPROSTINIL
     Indication: Hypoxia
  21. PEPTO-BISMOL [Suspect]
     Active Substance: BISMUTH SUBSALICYLATE
     Indication: Diarrhoea
  22. SILDENAFIL CITRATE [Concomitant]
     Active Substance: SILDENAFIL CITRATE
     Indication: Product used for unknown indication
  23. ROSUVASTATIN CALCIUM [Concomitant]
     Active Substance: ROSUVASTATIN CALCIUM
     Indication: Product used for unknown indication
  24. PROTONIX [Concomitant]
     Active Substance: PANTOPRAZOLE SODIUM
     Indication: Product used for unknown indication
  25. TOUJEO [Concomitant]
     Active Substance: INSULIN GLARGINE
     Indication: Product used for unknown indication
  26. LABETALOL HYDROCHLORIDE [Concomitant]
     Active Substance: LABETALOL HYDROCHLORIDE
     Indication: Product used for unknown indication
  27. ISOSORBIDE MONONITRATE [Concomitant]
     Active Substance: ISOSORBIDE MONONITRATE
     Indication: Product used for unknown indication
  28. FAMOTIDINE [Concomitant]
     Active Substance: FAMOTIDINE
     Indication: Product used for unknown indication
  29. FARXIGA [Concomitant]
     Active Substance: DAPAGLIFLOZIN PROPANEDIOL
     Indication: Product used for unknown indication
  30. FERROUS FUMARATE [Concomitant]
     Active Substance: FERROUS FUMARATE
     Indication: Product used for unknown indication

REACTIONS (9)
  - Diarrhoea [Recovering/Resolving]
  - Dehydration [Unknown]
  - Headache [Unknown]
  - Fatigue [Unknown]
  - Vomiting [Unknown]
  - Asthenia [Unknown]
  - Drug titration error [Unknown]
  - Product use issue [Not Recovered/Not Resolved]
  - Therapy non-responder [Unknown]

NARRATIVE: CASE EVENT DATE: 20250101
